FAERS Safety Report 8107580-3 (Version None)
Quarter: 2012Q1

REPORT INFORMATION
  Report Type: 
  Country: None (occurrence: None)
  Receive Date: 20120202
  Receipt Date: 20120125
  Transmission Date: 20120608
  Serious: Yes (Other)
  Sender: FDA-Public Use
  Company Number: US-BAYER-201021602NA

PATIENT
  Age: 47 Year
  Sex: Female
  Weight: 76 kg

DRUGS (4)
  1. COUMADIN [Concomitant]
     Indication: THROMBOSIS PROPHYLAXIS
  2. YAZ [Suspect]
     Indication: CONTRACEPTION
     Route: 048
     Dates: start: 20050101, end: 20090415
  3. YASMIN [Suspect]
     Indication: PRODUCT USED FOR UNKNOWN INDICATION
     Route: 048
     Dates: start: 20050101, end: 20090415
  4. CYMBALTA [Concomitant]

REACTIONS (5)
  - OEDEMA PERIPHERAL [None]
  - ERYTHEMA [None]
  - PAIN IN EXTREMITY [None]
  - SKIN WARM [None]
  - DEEP VEIN THROMBOSIS [None]
